FAERS Safety Report 5076675-3 (Version None)
Quarter: 2006Q3

REPORT INFORMATION
  Report Type: 
  Country: None (occurrence: None)
  Receive Date: 20060807
  Receipt Date: 20060721
  Transmission Date: 20061208
  Serious: Yes (Hospitalization)
  Sender: FDA-Public Use
  Company Number: 2005BI014354

PATIENT
  Age: 38 Year
  Sex: Female
  Weight: 58.0604 kg

DRUGS (2)
  1. AVONEX [Suspect]
     Indication: MULTIPLE SCLEROSIS
     Dosage: 30 UG;QW;IM
     Route: 030
     Dates: start: 19980601, end: 20030801
  2. AVONEX [Suspect]
     Indication: MULTIPLE SCLEROSIS
     Dosage: 30 UG;QW;IM
     Route: 030
     Dates: start: 20030801, end: 20050701

REACTIONS (8)
  - AMNESIA [None]
  - CATHETER RELATED INFECTION [None]
  - COMA [None]
  - LOSS OF CONSCIOUSNESS [None]
  - PROTEUS INFECTION [None]
  - SEPTIC SHOCK [None]
  - URINARY INCONTINENCE [None]
  - URINARY TRACT INFECTION BACTERIAL [None]
